FAERS Safety Report 7817570-3 (Version None)
Quarter: 2011Q4

REPORT INFORMATION
  Report Type: 
  Country: None (occurrence: None)
  Receive Date: 20111017
  Receipt Date: 20111003
  Transmission Date: 20120403
  Serious: Yes (Hospitalization)
  Sender: FDA-Public Use
  Company Number: PHHY2011FR80210

PATIENT
  Sex: Female

DRUGS (11)
  1. NEORAL [Suspect]
     Dosage: 400 MG, DAILY
     Dates: start: 20110820
  2. DIURETICS [Concomitant]
     Dosage: UNK UKN, UNK
  3. NEORAL [Suspect]
     Indication: LIVER TRANSPLANT
     Dosage: 450 MG, BID
     Dates: start: 20110728, end: 20110803
  4. NEORAL [Suspect]
     Dosage: 200 MG, DAILY
     Dates: start: 20110810
  5. FLUCONAZOLE [Suspect]
     Dosage: 400 MG, DAILY
     Dates: start: 20110720, end: 20110823
  6. VALGANCICLOVIR [Suspect]
     Dosage: 450MG 2 DF, DAILY
     Route: 048
     Dates: start: 20110803
  7. SOLU-MEDROL [Concomitant]
     Dosage: UNK UKN, UNK
  8. TRAMADOL HCL [Suspect]
     Dosage: 100 MG, QD
     Route: 048
     Dates: start: 20110728, end: 20110823
  9. ORBENIN CAP [Suspect]
     Dosage: UNK UKN, UNK
  10. NEORAL [Suspect]
     Dosage: 500 MG, DAILY
     Dates: start: 20110821, end: 20110823
  11. MYCOPHENOLATE MOFETIL (CELLCEPT) [Suspect]
     Dosage: 1500 MG, BID
     Route: 048
     Dates: start: 20110722

REACTIONS (11)
  - EYE MOVEMENT DISORDER [None]
  - AGITATION [None]
  - BLOOD CREATININE ABNORMAL [None]
  - OPSOCLONUS MYOCLONUS [None]
  - ENCEPHALOPATHY [None]
  - NEUROTOXICITY [None]
  - CEREBELLAR SYNDROME [None]
  - STATUS EPILEPTICUS [None]
  - RENAL IMPAIRMENT [None]
  - CREATININE RENAL CLEARANCE ABNORMAL [None]
  - RENAL FAILURE ACUTE [None]
